FAERS Safety Report 7771017-4 (Version None)
Quarter: 2011Q3

REPORT INFORMATION
  Report Type: 
  Country: None (occurrence: None)
  Receive Date: 20110922
  Receipt Date: 20110414
  Transmission Date: 20111222
  Serious: No
  Sender: FDA-Public Use
  Company Number: US-ASTRAZENECA-2010SE55051

PATIENT
  Age: 51 Year
  Sex: Male
  Weight: 77.1 kg

DRUGS (4)
  1. HYDROCODONE [Concomitant]
  2. DEPAKOTE [Concomitant]
  3. SEROQUEL [Suspect]
     Indication: BIPOLAR I DISORDER
     Route: 048
     Dates: end: 20101001
  4. SEROQUEL [Suspect]
     Route: 048

REACTIONS (6)
  - HOMICIDAL IDEATION [None]
  - INSOMNIA [None]
  - AGITATION [None]
  - MOOD ALTERED [None]
  - DRUG DOSE OMISSION [None]
  - DRUG WITHDRAWAL SYNDROME [None]
